FAERS Safety Report 10967513 (Version 1)
Quarter: 2015Q1

REPORT INFORMATION
  Report Type: Spontaneous
  Country: US (occurrence: US)
  Receive Date: 20150330
  Receipt Date: 20150330
  Transmission Date: 20150721
  Serious: No
  Sender: FDA-Public Use
  Company Number: US-PFIZER INC-2015104958

PATIENT
  Age: 75 Year
  Sex: Male
  Weight: 75 kg

DRUGS (6)
  1. SUTENT [Suspect]
     Active Substance: SUNITINIB MALATE
     Dosage: 37.5 MG, UNK
     Dates: start: 20140430, end: 20141112
  2. PRILOSEC [Concomitant]
     Active Substance: OMEPRAZOLE MAGNESIUM
  3. ALLOPURINOL. [Concomitant]
     Active Substance: ALLOPURINOL
  4. SUTENT [Suspect]
     Active Substance: SUNITINIB MALATE
     Indication: NEOPLASM MALIGNANT
     Dosage: 50 MG, 4 WEEKS ON AND 2 WEEKS OFF
     Dates: start: 20131216, end: 20140409
  5. AMLODIPINE/BENAZEPRIL [Concomitant]
  6. MEGACE [Concomitant]
     Active Substance: MEGESTROL ACETATE

REACTIONS (2)
  - Disease progression [Unknown]
  - Neoplasm malignant [Unknown]
